FAERS Safety Report 20851858 (Version 1)
Quarter: 2022Q2

REPORT INFORMATION
  Report Type: Spontaneous
  Country: US (occurrence: US)
  Receive Date: 20220520
  Receipt Date: 20220520
  Transmission Date: 20220721
  Serious: Yes (Death, Other)
  Sender: FDA-Public Use
  Company Number: US-SA-SAC20220516001120

PATIENT
  Age: 62 Year
  Sex: Male

DRUGS (1)
  1. ZANTAC [Suspect]
     Active Substance: RANITIDINE HYDROCHLORIDE
     Indication: Dyspepsia
     Dosage: UNK, QD (UNKNOWN AT THIS TIME)
     Dates: start: 201501, end: 201601

REACTIONS (1)
  - Lung carcinoma cell type unspecified stage III [Fatal]

NARRATIVE: CASE EVENT DATE: 20170501
